FAERS Safety Report 23190699 (Version 1)
Quarter: 2023Q4

REPORT INFORMATION
  Report Type: Spontaneous
  Country: US (occurrence: US)
  Receive Date: 20231116
  Receipt Date: 20231116
  Transmission Date: 20240110
  Serious: No
  Sender: FDA-Public Use
  Company Number: US-TARO PHARMACEUTICALS USA INC.-2022TAR01347

PATIENT

DRUGS (1)
  1. MUPIROCIN [Suspect]
     Active Substance: MUPIROCIN
     Indication: Rhinalgia
     Dosage: UNK, TID, Q TIP AMOUNT, INTRANASALLY RIGHT NOSTRIL
     Route: 045
     Dates: start: 20221031

REACTIONS (2)
  - Toothache [Not Recovered/Not Resolved]
  - Off label use [Unknown]
